FAERS Safety Report 8495805-4 (Version None)
Quarter: 2012Q3

REPORT INFORMATION
  Report Type: 
  Country: None (occurrence: None)
  Receive Date: 20120709
  Receipt Date: 20120627
  Transmission Date: 20120928
  Serious: Yes (Hospitalization, Other)
  Sender: FDA-Public Use
  Company Number: US-ROCHE-797039

PATIENT
  Sex: Female
  Weight: 94.3 kg

DRUGS (19)
  1. LASIX [Concomitant]
  2. NEXIUM [Concomitant]
  3. TOPAMAX [Concomitant]
  4. CALCIUM [Concomitant]
     Dosage: 1 UNIT
  5. FISH OIL [Concomitant]
     Dosage: 1 UNIT
  6. VEMURAFENIB [Suspect]
     Indication: METASTATIC MALIGNANT MELANOMA
     Dosage: DATE OF LAST DOSE PRIOR TO SAE: 20/MAR/2012
     Route: 048
  7. CYMBALTA [Concomitant]
  8. ARAVA [Concomitant]
     Dates: start: 19950615, end: 20110730
  9. LOSARTAN POTASSIUM [Concomitant]
     Dates: start: 20080615, end: 20110830
  10. VERAPAMIL [Concomitant]
  11. AMITRIPTYLINE HCL [Concomitant]
     Dates: start: 19850615
  12. MULTI-VITAMIN [Concomitant]
     Dosage: 1
     Dates: start: 20000615
  13. NORCO [Concomitant]
     Dosage: 5/75 MG DAILY
  14. POTASSIUM SODIUM HYDROGEN CITRATE [Concomitant]
     Dosage: FREQUENCY: 1
     Dates: start: 20080615, end: 20110322
  15. ATIVAN [Concomitant]
  16. ASCORBIC ACID [Concomitant]
     Dosage: 1 UNIT
     Dates: start: 20080615, end: 20110715
  17. CLONAZEPAM [Concomitant]
     Dates: start: 19850615
  18. METHOTREXATE [Suspect]
     Indication: METASTATIC MALIGNANT MELANOMA
     Dosage: 25
     Dates: start: 20110731, end: 20110915
  19. AMLODIPINE [Concomitant]
     Dates: start: 20080615, end: 20110830

REACTIONS (4)
  - PANCYTOPENIA [None]
  - BRONCHITIS [None]
  - CARDIAC FAILURE ACUTE [None]
  - PNEUMONIA [None]
